FAERS Safety Report 7218250-8 (Version None)
Quarter: 2011Q1

REPORT INFORMATION
  Report Type: 
  Country: None (occurrence: None)
  Receive Date: 20110110
  Receipt Date: 20110104
  Transmission Date: 20110831
  Serious: Yes (Hospitalization)
  Sender: FDA-Public Use
  Company Number: PHHO2011IT00528

PATIENT
  Sex: Female
  Weight: 80 kg

DRUGS (3)
  1. AMN107 [Suspect]
     Indication: CHRONIC MYELOID LEUKAEMIA
     Dosage: 300 MG, BID
     Route: 048
     Dates: start: 20101202, end: 20110102
  2. ALLOPURINOL [Concomitant]
  3. EUTIROX [Concomitant]
     Indication: HYPOTHYROIDISM

REACTIONS (4)
  - PERICARDITIS [None]
  - ELECTROCARDIOGRAM ST SEGMENT ELEVATION [None]
  - MUSCULOSKELETAL PAIN [None]
  - CHEST PAIN [None]
